FAERS Safety Report 10570509 (Version 2)
Quarter: 2015Q1

REPORT INFORMATION
  Report Type: Spontaneous
  Country: US (occurrence: US)
  Receive Date: 20141107
  Receipt Date: 20150209
  Transmission Date: 20150720
  Serious: Yes (Hospitalization)
  Sender: FDA-Public Use
  Company Number: US-BAYER-2014-161818

PATIENT
  Age: 42 Year
  Sex: Female
  Weight: 55.33 kg

DRUGS (10)
  1. ZOFRAN [Concomitant]
     Active Substance: ONDANSETRON HYDROCHLORIDE
  2. DILAUDID [Concomitant]
     Active Substance: HYDROMORPHONE HYDROCHLORIDE
  3. GIANVI [Suspect]
     Active Substance: DROSPIRENONE\ETHINYL ESTRADIOL
     Dosage: UNK
     Dates: start: 20060421, end: 20090309
  4. YASMIN [Suspect]
     Active Substance: DROSPIRENONE\ETHINYL ESTRADIOL
     Dosage: UNK
     Dates: start: 20060421, end: 20090309
  5. OCELLA [Suspect]
     Active Substance: DROSPIRENONE\ETHINYL ESTRADIOL
     Dosage: UNK
     Dates: start: 20060421, end: 20090309
  6. LEXAPRO [Concomitant]
     Active Substance: ESCITALOPRAM OXALATE
     Dosage: 20 MG, ONCE
     Route: 048
  7. ATIVAN [Concomitant]
     Active Substance: LORAZEPAM
     Dosage: 0.5 MG, ONCE DAILY
     Route: 048
  8. TORADOL [Concomitant]
     Active Substance: KETOROLAC TROMETHAMINE
  9. METRONIDAZOLE. [Concomitant]
     Active Substance: METRONIDAZOLE
     Dosage: 0.7
     Route: 067
     Dates: start: 20081125
  10. YAZ [Suspect]
     Active Substance: DROSPIRENONE\ETHINYL ESTRADIOL
     Dosage: UNK
     Dates: start: 20060421, end: 20090309

REACTIONS (10)
  - Pulmonary embolism [None]
  - Anxiety [None]
  - Injury [None]
  - Emotional distress [None]
  - Pain [None]
  - Psychological trauma [None]
  - Anhedonia [None]
  - Fear [None]
  - Deep vein thrombosis [None]
  - Pulmonary artery thrombosis [None]

NARRATIVE: CASE EVENT DATE: 20090305
